FAERS Safety Report 6357165-4 (Version None)
Quarter: 2009Q3

REPORT INFORMATION
  Report Type: 
  Country: None (occurrence: None)
  Receive Date: 20090911
  Receipt Date: 20090826
  Transmission Date: 20100115
  Serious: Yes (Hospitalization)
  Sender: FDA-Public Use
  Company Number: TPA2009A02453

PATIENT
  Age: 73 Year
  Sex: Male

DRUGS (2)
  1. PIOGLITAZONE HCL [Suspect]
     Indication: CEREBROVASCULAR ACCIDENT PROPHYLAXIS
     Dosage: PER ORAL
     Route: 048
  2. PIOGLITAZONE HCL [Suspect]
     Indication: ISCHAEMIC HEART DISEASE PROPHYLAXIS
     Dosage: PER ORAL
     Route: 048

REACTIONS (5)
  - BLADDER TRANSITIONAL CELL CARCINOMA [None]
  - DIALYSIS [None]
  - HAEMATURIA [None]
  - PROSTATOMEGALY [None]
  - RENAL FAILURE ACUTE [None]
